FAERS Safety Report 7947846 (Version 2)
Quarter: 2013Q2

REPORT INFORMATION
  Report Type: Report from Study
  Country: VE (occurrence: VE)
  Receive Date: 20110517
  Receipt Date: 20130607
  Transmission Date: 20140414
  Serious: Yes (Other)
  Sender: FDA-Public Use
  Company Number: PHHY2011VE38472

PATIENT
  Age: 47 Year
  Sex: Male

DRUGS (1)
  1. DIOVAN [Suspect]
     Indication: HYPERTENSION
     Dosage: 80 MG, DAILY

REACTIONS (4)
  - Convulsion [Recovered/Resolved]
  - Hypoglycaemia [Recovered/Resolved]
  - Hypokalaemia [Recovered/Resolved]
  - Hypotension [Recovered/Resolved]
